FAERS Safety Report 18137464 (Version 1)
Quarter: 2020Q3

REPORT INFORMATION
  Report Type: Spontaneous
  Country: IR (occurrence: IR)
  Receive Date: 20200811
  Receipt Date: 20200811
  Transmission Date: 20201103
  Serious: Yes (Hospitalization)
  Sender: FDA-Public Use
  Company Number: IR-AKRON, INC.-2088488

PATIENT
  Sex: Male

DRUGS (1)
  1. EPHEDRINE SULFATE INJECTION [Suspect]
     Active Substance: EPHEDRINE SULFATE

REACTIONS (1)
  - Cerebrovascular accident [Unknown]
